FAERS Safety Report 10008686 (Version 1)
Quarter: 2014Q1

REPORT INFORMATION
  Report Type: Spontaneous
  Country: US (occurrence: US)
  Receive Date: 20140312
  Receipt Date: 20140312
  Transmission Date: 20141002
  Serious: No
  Sender: FDA-Public Use
  Company Number: US-INCYTE CORPORATION-2012IN000387

PATIENT
  Sex: Female
  Weight: 90.7 kg

DRUGS (1)
  1. JAKAFI [Suspect]
     Indication: MYELOFIBROSIS
     Dosage: 15 MG, BID
     Route: 048
     Dates: start: 20111227

REACTIONS (5)
  - Somnolence [Unknown]
  - Eye pain [Unknown]
  - Dyspnoea [Unknown]
  - Anaemia [Unknown]
  - Dizziness [Unknown]
